FAERS Safety Report 6448879-6 (Version None)
Quarter: 2009Q4

REPORT INFORMATION
  Report Type: 
  Country: None (occurrence: None)
  Receive Date: 20091119
  Receipt Date: 20091119
  Transmission Date: 20100525
  Serious: Yes (Hospitalization)
  Sender: FDA-Public Use
  Company Number: None

PATIENT
  Sex: Female
  Weight: 73 kg

DRUGS (2)
  1. TEMOZOLOMIDE [Suspect]
     Indication: NEOPLASM
     Dosage: 150MG/M2 PO X 5 DAYS
     Route: 048
     Dates: start: 20091019, end: 20091023
  2. METHOXYAMINE [Suspect]
     Indication: NEOPLASM
     Dosage: 15MG/M2 IV X 1
     Route: 042
     Dates: start: 20091019

REACTIONS (4)
  - ABDOMINAL PAIN [None]
  - DEEP VEIN THROMBOSIS [None]
  - NAUSEA [None]
  - VOMITING [None]
